FAERS Safety Report 6387315-5 (Version None)
Quarter: 2009Q3

REPORT INFORMATION
  Report Type: 
  Country: None (occurrence: None)
  Receive Date: 20090930
  Receipt Date: 20090921
  Transmission Date: 20100115
  Serious: No
  Sender: FDA-Public Use
  Company Number: 20097356

PATIENT
  Sex: Male

DRUGS (7)
  1. LIORESAL [Suspect]
     Dosage: 89-50 MCG, DAILY, INTRATHECAL -SEE
     Route: 037
  2. CELEBREX [Concomitant]
  3. ATACAND [Concomitant]
  4. FUROSEMIDE [Concomitant]
  5. VITAMINS [Concomitant]
  6. MAGNESIUM [Concomitant]
  7. SPANISH BLACK RADISH [Concomitant]

REACTIONS (5)
  - BACK PAIN [None]
  - CATHETER RELATED COMPLICATION [None]
  - MUSCLE RIGIDITY [None]
  - MUSCLE SPASTICITY [None]
  - SEROMA [None]
